FAERS Safety Report 11971073 (Version 2)
Quarter: 2016Q1

REPORT INFORMATION
  Report Type: Report from Study
  Country: US (occurrence: US)
  Receive Date: 20160128
  Receipt Date: 20160128
  Transmission Date: 20160526
  Serious: Yes (Hospitalization)
  Sender: FDA-Public Use
  Company Number: US-ABBVIE-15K-163-1392570-00

PATIENT
  Age: 45 Year
  Sex: Male
  Weight: 87.17 kg

DRUGS (1)
  1. HUMIRA [Suspect]
     Active Substance: ADALIMUMAB
     Indication: PSORIASIS
     Route: 065
     Dates: start: 201411

REACTIONS (8)
  - Pancreatitis [Recovered/Resolved]
  - Psoriasis [Not Recovered/Not Resolved]
  - Alcohol problem [Recovered/Resolved]
  - Fall [Recovered/Resolved]
  - Endotracheal intubation [Recovered/Resolved]
  - Asthenia [Recovering/Resolving]
  - Hand fracture [Recovering/Resolving]
  - Hypophagia [Recovered/Resolved]

NARRATIVE: CASE EVENT DATE: 2015
